FAERS Safety Report 10255439 (Version 1)
Quarter: 2014Q2

REPORT INFORMATION
  Report Type: Spontaneous
  Country: CO (occurrence: CO)
  Receive Date: 20140624
  Receipt Date: 20140624
  Transmission Date: 20141212
  Serious: Yes (Other)
  Sender: FDA-Public Use
  Company Number: CO-JNJFOC-20140612774

PATIENT
  Age: 27 Year
  Sex: Male
  Weight: 70 kg

DRUGS (2)
  1. REMICADE [Suspect]
     Indication: ANKYLOSING SPONDYLITIS
     Route: 042
     Dates: start: 20140312
  2. REMICADE [Suspect]
     Indication: ANKYLOSING SPONDYLITIS
     Route: 042
     Dates: start: 20140610

REACTIONS (6)
  - Haematochezia [Recovering/Resolving]
  - Hypoaesthesia [Recovering/Resolving]
  - Epistaxis [Recovering/Resolving]
  - Haematemesis [Recovering/Resolving]
  - Swelling face [Recovering/Resolving]
  - Infusion related reaction [Recovering/Resolving]
